FAERS Safety Report 4301280-3 (Version None)
Quarter: 2004Q1

REPORT INFORMATION
  Report Type: 
  Country: None (occurrence: None)
  Receive Date: 20040220
  Receipt Date: 20040220
  Transmission Date: 20041129
  Serious: No
  Sender: FDA-Public Use
  Company Number: None

PATIENT
  Age: 51 Year
  Sex: Female
  Weight: 53.5244 kg

DRUGS (5)
  1. LEXAPRO [Suspect]
     Indication: DEPRESSION
     Dosage: 1 TAB PO QD
     Route: 048
     Dates: start: 20040209, end: 20040210
  2. AMARYL [Concomitant]
  3. CALCUIM [Concomitant]
  4. PROTONIX [Concomitant]
  5. VIT C [Concomitant]

REACTIONS (3)
  - ABDOMINAL PAIN UPPER [None]
  - INSOMNIA [None]
  - TREMOR [None]
